FAERS Safety Report 24789572 (Version 1)
Quarter: 2024Q4

REPORT INFORMATION
  Report Type: Spontaneous
  Country: NL (occurrence: NL)
  Receive Date: 20241230
  Receipt Date: 20241230
  Transmission Date: 20250114
  Serious: Yes (Other)
  Sender: TEVA
  Company Number: None

PATIENT
  Age: 28 Year
  Sex: Female
  Weight: 75 kg

DRUGS (1)
  1. VENLAFAXINE [Suspect]
     Active Substance: VENLAFAXINE HYDROCHLORIDE
     Indication: Perinatal depression
     Dosage: 1 CAPSULE ONCE A DAY; MGA / BRAND NAME NOT SPECIFIED
     Route: 048
     Dates: start: 20200501

REACTIONS (2)
  - Bruxism [Unknown]
  - Osteoarthritis [Unknown]
